FAERS Safety Report 25210134 (Version 4)
Quarter: 2025Q2

REPORT INFORMATION
  Report Type: Spontaneous
  Country: US (occurrence: US)
  Receive Date: 20250417
  Receipt Date: 20250514
  Transmission Date: 20250717
  Serious: Yes (Other)
  Sender: PFIZER
  Company Number: US-PFIZER INC-PV202500003807

PATIENT
  Age: 11 Year
  Sex: Male
  Weight: 29.03 kg

DRUGS (2)
  1. NGENLA [Suspect]
     Active Substance: SOMATROGON-GHLA
     Indication: Hypopituitarism
     Dosage: 26.3 MG, WEEKLY
  2. NGENLA [Suspect]
     Active Substance: SOMATROGON-GHLA
     Indication: Growth hormone deficiency
     Dosage: 17 MG, WEEKLY (EVERY MONDAY)
     Dates: start: 202501

REACTIONS (8)
  - Suicidal ideation [Unknown]
  - Mental impairment [Unknown]
  - Suicidal behaviour [Unknown]
  - Product prescribing error [Unknown]
  - Crying [Unknown]
  - Abnormal behaviour [Unknown]
  - Depressed mood [Not Recovered/Not Resolved]
  - Anxiety [Unknown]

NARRATIVE: CASE EVENT DATE: 20240218
